FAERS Safety Report 15447641 (Version 1)
Quarter: 2018Q3

REPORT INFORMATION
  Report Type: Spontaneous
  Country: US (occurrence: US)
  Receive Date: 20180928
  Receipt Date: 20180928
  Transmission Date: 20181010
  Serious: Yes (Hospitalization, Other)
  Sender: FDA-Public Use
  Company Number: US-GILEAD-2018-0365301

PATIENT
  Sex: Male

DRUGS (1)
  1. YESCARTA [Suspect]
     Active Substance: AXICABTAGENE CILOLEUCEL
     Indication: LYMPHOMA
     Dosage: SINGLE
     Route: 065
     Dates: start: 20180623, end: 20180623

REACTIONS (6)
  - Inflammation [Not Recovered/Not Resolved]
  - Renal disorder [Not Recovered/Not Resolved]
  - B-cell lymphoma recurrent [Not Recovered/Not Resolved]
  - Pyrexia [Not Recovered/Not Resolved]
  - Neurotoxicity [Recovered/Resolved]
  - Disease progression [Not Recovered/Not Resolved]

NARRATIVE: CASE EVENT DATE: 2018
